FAERS Safety Report 12582619 (Version 3)
Quarter: 2016Q4

REPORT INFORMATION
  Report Type: Spontaneous
  Country: TH (occurrence: TH)
  Receive Date: 20160722
  Receipt Date: 20161024
  Transmission Date: 20170207
  Serious: Yes (Death, Hospitalization)
  Sender: FDA-Public Use
  Company Number: PHHY2016TH100232

PATIENT
  Age: 54 Year
  Sex: Female
  Weight: 40 kg

DRUGS (1)
  1. TASIGNA [Suspect]
     Active Substance: NILOTINIB
     Indication: CHRONIC MYELOID LEUKAEMIA
     Dosage: 800 MG, UNK
     Route: 048
     Dates: start: 20131025, end: 20131226

REACTIONS (4)
  - Anaemia [Unknown]
  - Blast crisis in myelogenous leukaemia [Not Recovered/Not Resolved]
  - Pyrexia [Unknown]
  - Death [Fatal]

NARRATIVE: CASE EVENT DATE: 20131226
